FAERS Safety Report 6017873-1 (Version None)
Quarter: 2008Q4

REPORT INFORMATION
  Report Type: 
  Country: None (occurrence: None)
  Receive Date: 20081223
  Receipt Date: 20081217
  Transmission Date: 20090506
  Serious: Yes (Disabling)
  Sender: FDA-Public Use
  Company Number: GB-MERCK-0812GBR00078

PATIENT
  Age: 60 Year
  Sex: Female

DRUGS (4)
  1. ZOCOR [Suspect]
     Indication: HYPERLIPIDAEMIA
     Route: 048
     Dates: start: 20071001, end: 20080907
  2. DEVILS CLAW [Concomitant]
     Route: 065
  3. GLUCOSAMINE [Concomitant]
     Route: 065
  4. LECITHIN [Concomitant]
     Route: 065

REACTIONS (2)
  - ANXIETY [None]
  - PALPITATIONS [None]
